FAERS Safety Report 6600716-2 (Version None)
Quarter: 2010Q1

REPORT INFORMATION
  Report Type: 
  Country: None (occurrence: None)
  Receive Date: 20100223
  Receipt Date: 20100223
  Transmission Date: 20100710
  Serious: Yes (Other)
  Sender: FDA-Public Use
  Company Number: None

PATIENT
  Age: 31 Year
  Sex: Male
  Weight: 74.8435 kg

DRUGS (3)
  1. DEXTROAMPHETAMINE [Suspect]
     Indication: ATTENTION DEFICIT/HYPERACTIVITY DISORDER
     Dosage: 3 CAPSULES 1X PO
     Route: 048
     Dates: start: 20100201, end: 20100219
  2. ADDERALL XR 10 [Concomitant]
  3. DEXTROAMP-AMPHET ER [Concomitant]

REACTIONS (7)
  - AGITATION [None]
  - APATHY [None]
  - DEPRESSION [None]
  - MOOD SWINGS [None]
  - PRODUCT SUBSTITUTION ISSUE [None]
  - SOMNOLENCE [None]
  - THERAPEUTIC RESPONSE UNEXPECTED WITH DRUG SUBSTITUTION [None]
